FAERS Safety Report 8581285-7 (Version None)
Quarter: 2012Q3

REPORT INFORMATION
  Report Type: 
  Country: None (occurrence: None)
  Receive Date: 20120809
  Receipt Date: 20120726
  Transmission Date: 20120928
  Serious: Yes (Life-Threatening, Hospitalization)
  Sender: FDA-Public Use
  Company Number: NL-MYLANLABS-2012S1015364

PATIENT
  Age: 45 Year
  Sex: Male
  Weight: 75 kg

DRUGS (2)
  1. RIFADIN [Suspect]
     Indication: PERITONITIS
     Dosage: 1 MAAL DAAG 600MG
     Route: 048
     Dates: start: 20120423, end: 20120515
  2. FLUCONAZOLE [Suspect]
     Indication: PERITONITIS
     Dosage: 1 MAAL DAAG 400MG
     Route: 048
     Dates: start: 20120512, end: 20120515

REACTIONS (2)
  - LEUKOCYTOCLASTIC VASCULITIS [None]
  - INTESTINAL ULCER [None]
